FAERS Safety Report 7220527-7 (Version None)
Quarter: 2011Q1

REPORT INFORMATION
  Report Type: 
  Country: None (occurrence: None)
  Receive Date: 20110111
  Receipt Date: 20110107
  Transmission Date: 20110831
  Serious: Yes (Other)
  Sender: FDA-Public Use
  Company Number: DE-ABBOTT-11P-062-0695884-00

PATIENT
  Sex: Male
  Weight: 70 kg

DRUGS (5)
  1. HUMIRA [Suspect]
     Indication: PRODUCT USED FOR UNKNOWN INDICATION
     Route: 058
     Dates: start: 20100222, end: 20101101
  2. PREDNISOLONE [Concomitant]
     Indication: PROSTATIC SPECIFIC ANTIGEN ABNORMAL
     Route: 048
     Dates: start: 20090501
  3. CARMEN [Concomitant]
     Indication: HYPERTENSION
     Route: 048
     Dates: start: 20100501
  4. DULOXETINE [Concomitant]
     Indication: DEPRESSION
     Route: 048
     Dates: start: 20090801
  5. HUMIRA [Suspect]
     Route: 058
     Dates: start: 20101201

REACTIONS (1)
  - LIGAMENT RUPTURE [None]
